FAERS Safety Report 20122688 (Version 1)
Quarter: 2021Q4

REPORT INFORMATION
  Report Type: Spontaneous
  Country: US (occurrence: US)
  Receive Date: 20211128
  Receipt Date: 20211128
  Transmission Date: 20220304
  Serious: No
  Sender: FDA-Public Use
  Company Number: US-BIOVITRUM-2021US11258

PATIENT
  Sex: Male
  Weight: 8 kg

DRUGS (5)
  1. SYNAGIS [Suspect]
     Active Substance: PALIVIZUMAB
     Indication: Antiviral prophylaxis
     Dosage: SYNAGIS 50MG/0.5ML VL LIQUID, 100MG/1ML VL LIQUID
     Route: 030
  2. DIURIL 250 MG/5ML ORAL SUSP [Concomitant]
  3. OXYGEN [Concomitant]
     Active Substance: OXYGEN
  4. VITAMIN D-400 10 MCG TABLET [Concomitant]
  5. IRONUP 15MG/0.5ML DROPS [Concomitant]

REACTIONS (2)
  - Influenza [Unknown]
  - Product dose omission issue [Unknown]
